FAERS Safety Report 7331997-8 (Version None)
Quarter: 2011Q1

REPORT INFORMATION
  Report Type: 
  Country: None (occurrence: None)
  Receive Date: 20110304
  Receipt Date: 20110124
  Transmission Date: 20110831
  Serious: No
  Sender: FDA-Public Use
  Company Number: US-TYCO HEALTHCARE/MALLINCKRODT-T201100128

PATIENT
  Sex: Male

DRUGS (8)
  1. EXALGO [Suspect]
     Indication: PARAESTHESIA
  2. OXYCODONE [Concomitant]
     Indication: NECK PAIN
  3. NEURONTIN [Concomitant]
     Indication: CONVULSION
     Dosage: 300 MG, BID
     Route: 048
     Dates: start: 20100701
  4. NEXIUM [Concomitant]
     Indication: GASTROOESOPHAGEAL REFLUX DISEASE
     Dosage: 1 IN THE AM
     Route: 048
     Dates: start: 20100701
  5. EXALGO [Suspect]
     Indication: NECK PAIN
  6. FLEXERIL [Concomitant]
     Indication: MUSCLE SPASMS
     Dosage: 10 MG AT NIGHT
     Route: 048
     Dates: start: 20100701
  7. EXALGO [Suspect]
     Indication: BACK PAIN
     Dosage: 8 MG, QD
     Route: 048
     Dates: start: 20110104
  8. OXYCODONE [Concomitant]
     Indication: BACK PAIN
     Dosage: 10 MG, TID
     Route: 048
     Dates: start: 20100701, end: 20110103

REACTIONS (1)
  - MUSCLE SPASTICITY [None]
